FAERS Safety Report 7421608-5 (Version None)
Quarter: 2011Q2

REPORT INFORMATION
  Report Type: 
  Country: None (occurrence: None)
  Receive Date: 20110418
  Receipt Date: 20110330
  Transmission Date: 20111010
  Serious: Yes (Hospitalization)
  Sender: FDA-Public Use
  Company Number: US-ASTRAZENECA-2010SE13318

PATIENT
  Age: 29090 Day
  Sex: Male
  Weight: 78.5 kg

DRUGS (7)
  1. PLAVIX [Concomitant]
  2. ATACAND [Suspect]
     Indication: HYPERTENSION
     Route: 048
     Dates: start: 20080725
  3. CADUET [Suspect]
     Indication: HYPERTENSION
     Route: 048
     Dates: start: 20080725
  4. DOXAZOSIN [Concomitant]
  5. ASPIRIN [Concomitant]
  6. STUDY PROCEDURE [Suspect]
     Indication: HYPERTENSION
  7. METOPROLOL [Concomitant]

REACTIONS (1)
  - ILL-DEFINED DISORDER [None]
